FAERS Safety Report 14093623 (Version 4)
Quarter: 2017Q4

REPORT INFORMATION
  Report Type: Spontaneous
  Country: US (occurrence: US)
  Receive Date: 20171016
  Receipt Date: 20171103
  Transmission Date: 20180321
  Serious: Yes (Death, Hospitalization)
  Sender: FDA-Public Use
  Company Number: US-UNITED THERAPEUTICS-UNT-2017-010345

PATIENT
  Age: 65 Year
  Sex: Female
  Weight: 58.96 kg

DRUGS (6)
  1. TYVASO [Suspect]
     Active Substance: TREPROSTINIL
     Dosage: 72 ?G, QID
     Dates: start: 201706
  2. TYVASO [Suspect]
     Active Substance: TREPROSTINIL
     Indication: PULMONARY ARTERIAL HYPERTENSION
     Dosage: UNK
  3. TYVASO [Suspect]
     Active Substance: TREPROSTINIL
     Dosage: 54 ?G, UNK
  4. TYVASO [Suspect]
     Active Substance: TREPROSTINIL
     Dosage: UNK
  5. TYVASO [Suspect]
     Active Substance: TREPROSTINIL
     Dosage: 18 - 54 MICROGRAMS, QID
  6. TYVASO [Suspect]
     Active Substance: TREPROSTINIL
     Indication: PULMONARY HYPERTENSION
     Dosage: 18-72 MICROGRAMS, QID
     Dates: start: 20170127

REACTIONS (15)
  - Death [Fatal]
  - Asthenia [Unknown]
  - Cough [Unknown]
  - Malaise [Unknown]
  - Bronchitis [Unknown]
  - Migraine [Unknown]
  - Toothache [Unknown]
  - Off label use [Unknown]
  - Nausea [Unknown]
  - Gingival erythema [Unknown]
  - Tremor [Unknown]
  - Fatigue [Unknown]
  - Glossodynia [Unknown]
  - Tongue erythema [Unknown]
  - Oral pain [Unknown]

NARRATIVE: CASE EVENT DATE: 2017
